FAERS Safety Report 9284606 (Version 1)
Quarter: 2013Q2

REPORT INFORMATION
  Report Type: Spontaneous
  Country: US (occurrence: US)
  Receive Date: 20130513
  Receipt Date: 20130513
  Transmission Date: 20140414
  Serious: Yes (Hospitalization)
  Sender: FDA-Public Use
  Company Number: US-B.I. PHARMACEUTICALS,INC./RIDGEFIELD-2013-BI-12086BP

PATIENT
  Age: 58 Year
  Sex: Male
  Weight: 102 kg

DRUGS (10)
  1. SPIRIVA [Suspect]
     Indication: CHRONIC OBSTRUCTIVE PULMONARY DISEASE
     Dosage: 18 MCG
     Route: 055
     Dates: start: 2006
  2. GABAPENTIN [Concomitant]
     Dosage: 300 MG
     Route: 048
  3. CYCLOBENZAPRINE [Concomitant]
     Indication: MUSCLE SPASMS
     Dosage: 10 MG
     Route: 048
  4. PIOGLITAZONE HCL [Concomitant]
     Indication: DIABETES MELLITUS
     Dosage: 30 MG
     Route: 048
  5. LANTUS INSULIN [Concomitant]
     Indication: DIABETES MELLITUS
     Route: 058
  6. HUMULOG INSULIN [Concomitant]
     Indication: DIABETES MELLITUS
     Route: 058
  7. LISINOPRIL [Concomitant]
     Indication: HYPERTENSION
     Dosage: 20 MG
     Route: 048
  8. DIOVAN [Concomitant]
     Dosage: 40 MG
     Route: 048
  9. VICODIN [Concomitant]
     Indication: INTERVERTEBRAL DISC DEGENERATION
     Route: 048
  10. MELOXICAM [Concomitant]
     Dosage: 15 MG

REACTIONS (5)
  - Pulmonary hypertension [Not Recovered/Not Resolved]
  - Chest pain [Recovered/Resolved]
  - Dyspnoea [Recovered/Resolved]
  - Dizziness [Recovered/Resolved]
  - Aphonia [Not Recovered/Not Resolved]
